FAERS Safety Report 9581323 (Version 1)
Quarter: 2013Q4

REPORT INFORMATION
  Report Type: Spontaneous
  Country: US (occurrence: US)
  Receive Date: 20131002
  Receipt Date: 20131002
  Transmission Date: 20140711
  Serious: Yes (Other)
  Sender: FDA-Public Use
  Company Number: US-GLAXOSMITHKLINE-A1043093A

PATIENT
  Age: 75 Year
  Sex: Female

DRUGS (5)
  1. ADVAIR [Suspect]
     Indication: CHRONIC OBSTRUCTIVE PULMONARY DISEASE
     Dosage: 1PUFF TWICE PER DAY
     Route: 055
  2. ALBUTEROL [Concomitant]
  3. NORVASC [Concomitant]
  4. ZETIA [Concomitant]
  5. XANAX [Concomitant]

REACTIONS (2)
  - Pneumonia [Recovered/Resolved]
  - Haemoptysis [Not Recovered/Not Resolved]
